FAERS Safety Report 8332895-3 (Version None)
Quarter: 2012Q1

REPORT INFORMATION
  Report Type: 
  Country: None (occurrence: None)
  Receive Date: 20120315
  Receipt Date: 20101221
  Transmission Date: 20120608
  Serious: No
  Sender: FDA-Public Use
  Company Number: PHHY2010US72178

PATIENT
  Age: 56 Year
  Sex: Female

DRUGS (8)
  1. OSTEO BI-FLEX (CHONDROITIN SULFATE, GLUCOSAMINE HYDROCHLORIDE) [Concomitant]
  2. TOPAMAX [Concomitant]
  3. MULTIVITAMINS (ASCORBIC ACID, ERGOCALCIFEROL, FOLIC ACID, NICOTINAMIDE [Concomitant]
  4. GILENYA [Suspect]
     Indication: MULTIPLE SCLEROSIS RELAPSE
     Dosage: 0.5 MG, QD, ORAL
     Route: 048
     Dates: start: 20101025
  5. LISINOPRIL [Concomitant]
  6. VITAMIN B12 [Concomitant]
  7. CALCIUM CARBONATE [Concomitant]
  8. AANAFLEX (TIZANIDINE HYDROCHLORIDE) [Concomitant]

REACTIONS (4)
  - SINUS ARRHYTHMIA [None]
  - EXTRASYSTOLES [None]
  - COORDINATION ABNORMAL [None]
  - HYPOAESTHESIA [None]
